FAERS Safety Report 18545173 (Version 1)
Quarter: 2020Q4

REPORT INFORMATION
  Report Type: Spontaneous
  Country: US (occurrence: US)
  Receive Date: 20201125
  Receipt Date: 20201125
  Transmission Date: 20210114
  Serious: Yes (Disabling, Other)
  Sender: FDA-Public Use
  Company Number: None

PATIENT
  Age: 44 Year
  Sex: Female
  Weight: 75.15 kg

DRUGS (8)
  1. AIMOVIG [Suspect]
     Active Substance: ERENUMAB-AOOE
     Indication: MIGRAINE
     Dosage: ?          QUANTITY:1 INJECTION(S);OTHER FREQUENCY:ONCE MONTHLY;?
     Route: 030
     Dates: start: 20190531, end: 20190601
  2. LEVOTHYROXINE. [Concomitant]
     Active Substance: LEVOTHYROXINE
  3. VITAMIN B1 [Concomitant]
     Active Substance: THIAMINE HYDROCHLORIDE
  4. MAGNESIUM [Concomitant]
     Active Substance: MAGNESIUM
  5. VITAMIN D [Concomitant]
     Active Substance: VITAMIN D NOS
  6. LIOTHYRONINE [Concomitant]
     Active Substance: LIOTHYRONINE
  7. CALCIUM [Concomitant]
     Active Substance: CALCIUM
  8. BACLOFEN. [Concomitant]
     Active Substance: BACLOFEN

REACTIONS (32)
  - Nausea [None]
  - Arthralgia [None]
  - Gastrointestinal motility disorder [None]
  - Pain in jaw [None]
  - Malaise [None]
  - Trigeminal neuralgia [None]
  - Rash [None]
  - Dizziness [None]
  - Oropharyngeal pain [None]
  - Irritability [None]
  - Myalgia [None]
  - Tinnitus [None]
  - Blindness unilateral [None]
  - Decreased appetite [None]
  - Migraine [None]
  - Toothache [None]
  - Dyschezia [None]
  - Dyspepsia [None]
  - Abdominal distension [None]
  - Vomiting [None]
  - Nasal congestion [None]
  - Muscle spasms [None]
  - Crying [None]
  - Eye pain [None]
  - Visual impairment [None]
  - Hypoaesthesia [None]
  - Paraesthesia [None]
  - Fatigue [None]
  - Ear pain [None]
  - Insomnia [None]
  - Mood swings [None]
  - Facial pain [None]

NARRATIVE: CASE EVENT DATE: 20190531
